FAERS Safety Report 12353654 (Version 1)
Quarter: 2016Q2

REPORT INFORMATION
  Report Type: Spontaneous
  Country: US (occurrence: US)
  Receive Date: 20160511
  Receipt Date: 20160511
  Transmission Date: 20160815
  Serious: No
  Sender: FDA-Public Use
  Company Number: US-ASTRAZENECA-2016SE34775

PATIENT
  Sex: Female

DRUGS (4)
  1. ASPIRIN. [Concomitant]
     Active Substance: ASPIRIN
  2. ZOMIG [Suspect]
     Active Substance: ZOLMITRIPTAN
     Indication: MIGRAINE
     Route: 048
  3. ZOMIG [Suspect]
     Active Substance: ZOLMITRIPTAN
     Indication: MIGRAINE
     Route: 048
     Dates: start: 2001
  4. MOTRIN [Concomitant]
     Active Substance: IBUPROFEN

REACTIONS (4)
  - Off label use [Unknown]
  - Drug ineffective [Unknown]
  - Malaise [Unknown]
  - Intentional product misuse [Unknown]
